FAERS Safety Report 13126713 (Version 1)
Quarter: 2017Q1

REPORT INFORMATION
  Report Type: Report from Study
  Country: US (occurrence: US)
  Receive Date: 20170118
  Receipt Date: 20170118
  Transmission Date: 20170428
  Serious: Yes (Death)
  Sender: FDA-Public Use
  Company Number: US-EXELIXIS-CABO-17007939

PATIENT
  Age: 56 Year
  Sex: Male

DRUGS (12)
  1. TOPROL XL [Concomitant]
     Active Substance: METOPROLOL SUCCINATE
  2. CYCLOBENZAPRINE [Concomitant]
     Active Substance: CYCLOBENZAPRINE
  3. PRILOSEC [Concomitant]
     Active Substance: OMEPRAZOLE MAGNESIUM
  4. LOMOTIL [Concomitant]
     Active Substance: ATROPINE SULFATE\DIPHENOXYLATE HYDROCHLORIDE
  5. CABOMETYX [Suspect]
     Active Substance: CABOZANTINIB S-MALATE
     Indication: MALIGNANT NEOPLASM OF RENAL PELVIS
  6. ONDANSETRON [Concomitant]
     Active Substance: ONDANSETRON
  7. TRIAMCINOLON [Concomitant]
  8. OXYCODONE [Concomitant]
     Active Substance: OXYCODONE
  9. PAXIL [Concomitant]
     Active Substance: PAROXETINE HYDROCHLORIDE
  10. CABOMETYX [Suspect]
     Active Substance: CABOZANTINIB S-MALATE
     Indication: RENAL CANCER
     Dosage: 60 MG, QD
     Route: 048
     Dates: start: 20160608
  11. DEXAMETHASON [Concomitant]
     Active Substance: DEXAMETHASONE
  12. OXYCODONE AND ACETAMINOPHEN [Concomitant]
     Active Substance: ACETAMINOPHEN\OXYCODONE HYDROCHLORIDE

REACTIONS (1)
  - Death [Fatal]

NARRATIVE: CASE EVENT DATE: 20161228
